FAERS Safety Report 5917988-X (Version None)
Quarter: 2008Q4

REPORT INFORMATION
  Report Type: 
  Country: None (occurrence: None)
  Receive Date: 20081014
  Receipt Date: 20081003
  Transmission Date: 20090506
  Serious: Yes (Hospitalization)
  Sender: FDA-Public Use
  Company Number: US-ELI_LILLY_AND_COMPANY-US200810001079

PATIENT
  Sex: Female
  Weight: 68.934 kg

DRUGS (25)
  1. BYETTA [Suspect]
     Indication: TYPE 2 DIABETES MELLITUS
     Dosage: 5 UG, 2/D
     Route: 058
     Dates: start: 20080529, end: 20080728
  2. BYETTA [Suspect]
     Dosage: 10 UG, 2/D
     Route: 058
     Dates: start: 20080729, end: 20080930
  3. METFORMIN [Concomitant]
     Indication: TYPE 2 DIABETES MELLITUS
     Dosage: 500 MG, 3/D
     Route: 048
  4. LASIX [Concomitant]
     Indication: FLUID RETENTION
     Dosage: 20 MG, 2/W
     Route: 048
  5. ZAROXOLYN [Concomitant]
     Indication: FLUID RETENTION
     Dosage: 2.5 MG, WEEKLY (1/W)
     Route: 048
  6. KLOR-CON [Concomitant]
     Dosage: 20 MEQ, DAILY (1/D)
     Route: 048
  7. KLOR-CON [Concomitant]
     Dosage: 40 MEQ, 2/W
     Route: 048
  8. LANOXIN [Concomitant]
     Indication: CARDIOMYOPATHY
     Dosage: 0.125 MG, DAILY (1/D)
     Route: 048
  9. DIOVAN [Concomitant]
     Dosage: 160 MG, DAILY (1/D)
     Route: 048
     Dates: end: 20080901
  10. LEVOTHYROXINE SODIUM [Concomitant]
     Indication: HYPOTHYROIDISM
     Dosage: 0.1 MG, DAILY (1/D)
     Route: 048
  11. PRILOSEC [Concomitant]
     Dosage: 20 MG, 2/D
     Route: 048
  12. CYMBALTA [Concomitant]
     Dosage: 60 MG, EACH EVENING
  13. ALLOPURINOL [Concomitant]
     Dosage: 120 MG, 2/D
     Dates: end: 20080901
  14. XANAX [Concomitant]
     Dosage: 0.5 MG, 2/D
     Route: 048
  15. NEURONTIN [Concomitant]
     Dosage: 600 MG, EACH EVENING
     Route: 048
  16. NEURONTIN [Concomitant]
     Dosage: 300 MG, EACH MORNING
     Route: 048
  17. NEURONTIN [Concomitant]
     Dosage: 300 MG, 2/D
     Route: 048
  18. LOPID [Concomitant]
     Dosage: 600 MG, DAILY (1/D)
     Route: 048
     Dates: end: 20080901
  19. DARVOCET [Concomitant]
     Indication: ARTHRITIS
     Dosage: 200 MG, EACH EVENING
  20. DARVOCET [Concomitant]
     Dosage: 100 MG, EACH MORNING
  21. SURFAK [Concomitant]
     Dosage: UNK, UNK
     Dates: end: 20080901
  22. GLUCOSAMINE W/CHONDROITIN [Concomitant]
     Dosage: UNK, 3/D
     Route: 048
  23. MELATONIN [Concomitant]
     Dosage: UNK, EACH MORNING
     Route: 048
     Dates: end: 20080901
  24. DULCOLAX [Concomitant]
     Dosage: UNK, AS NEEDED
     Route: 048
  25. BENADRYL [Concomitant]
     Indication: INSOMNIA
     Dosage: 25 MG, EACH EVENING
     Route: 048

REACTIONS (10)
  - BLOOD GLUCOSE INCREASED [None]
  - CONTUSION [None]
  - CONVULSION [None]
  - FALL [None]
  - HEAD INJURY [None]
  - INJURY [None]
  - LOSS OF CONSCIOUSNESS [None]
  - PAIN [None]
  - SENSORY DISTURBANCE [None]
  - WHIPLASH INJURY [None]
